FAERS Safety Report 5407356-1 (Version None)
Quarter: 2007Q3

REPORT INFORMATION
  Report Type: 
  Country: None (occurrence: None)
  Receive Date: 20070807
  Receipt Date: 20070730
  Transmission Date: 20080115
  Serious: Yes (Hospitalization)
  Sender: FDA-Public Use
  Company Number: US-AMGEN-US236567

PATIENT
  Sex: Female

DRUGS (2)
  1. ENBREL [Suspect]
     Indication: RHEUMATOID ARTHRITIS
     Route: 058
     Dates: start: 19971201
  2. METHOTREXATE [Concomitant]
     Route: 058

REACTIONS (14)
  - ASPIRATION JOINT [None]
  - DEHYDRATION [None]
  - DEVICE RELATED INFECTION [None]
  - DIARRHOEA [None]
  - FALL [None]
  - FRACTURED COCCYX [None]
  - GUILLAIN-BARRE SYNDROME [None]
  - JOINT INJECTION [None]
  - PELVIC FRACTURE [None]
  - PSEUDOMONAS INFECTION [None]
  - PYREXIA [None]
  - STAPHYLOCOCCAL INFECTION [None]
  - THROMBOSIS [None]
  - VOMITING [None]
